FAERS Safety Report 5375942-3 (Version None)
Quarter: 2007Q2

REPORT INFORMATION
  Report Type: 
  Country: None (occurrence: None)
  Receive Date: 20070627
  Receipt Date: 20070627
  Transmission Date: 20071010
  Serious: Yes (Hospitalization)
  Sender: FDA-Public Use
  Company Number: None

PATIENT
  Age: 68 Year
  Sex: Male
  Weight: 91 kg

DRUGS (2)
  1. IBUPROFEN [Suspect]
     Indication: BACK PAIN
     Dosage: PO
     Route: 048
  2. ASPIRIN [Suspect]
     Indication: BACK PAIN
     Dosage: PO
     Route: 048

REACTIONS (1)
  - EPISTAXIS [None]
